FAERS Safety Report 5828252-1 (Version None)
Quarter: 2008Q3

REPORT INFORMATION
  Report Type: 
  Country: None (occurrence: None)
  Receive Date: 20080731
  Receipt Date: 20080725
  Transmission Date: 20090109
  Serious: Yes (Death)
  Sender: FDA-Public Use
  Company Number: GB-TEVA-164716ISR

PATIENT
  Age: 78 Year
  Sex: Female

DRUGS (1)
  1. SIMVASTATIN [Suspect]
     Indication: CARDIOVASCULAR EVENT PROPHYLAXIS
     Route: 048
     Dates: end: 20070912

REACTIONS (6)
  - ARTERIOSCLEROSIS [None]
  - BRONCHOPNEUMONIA [None]
  - CARDIAC FAILURE [None]
  - DYSPNOEA [None]
  - HAEMOPTYSIS [None]
  - LUNG INJURY [None]
